FAERS Safety Report 8526049-5 (Version None)
Quarter: 2012Q3

REPORT INFORMATION
  Report Type: 
  Country: None (occurrence: None)
  Receive Date: 20120721
  Receipt Date: 20120716
  Transmission Date: 20120928
  Serious: Yes (Other)
  Sender: FDA-Public Use
  Company Number: CA-AMGEN-CANSP2012034576

PATIENT
  Age: 55 Year
  Sex: Female

DRUGS (7)
  1. PREDNISONE [Suspect]
     Indication: ARTHRITIS
     Dosage: 10 MG, QD
     Route: 048
     Dates: start: 19890101, end: 20120201
  2. ENBREL [Suspect]
     Indication: RHEUMATOID ARTHRITIS
     Dosage: 25 MG, 2 TIMES/WK
     Route: 058
     Dates: end: 20120410
  3. CORTISONE ACETATE [Concomitant]
     Dosage: 10 MG, QD
  4. VOLTAREN [Concomitant]
     Dosage: UNK
  5. SULFASALAZINE [Concomitant]
     Indication: ARTHRITIS
     Dosage: 500 MG, BID
     Route: 048
     Dates: start: 20110516
  6. ENBREL [Suspect]
     Dosage: 25 MG, 2 TIMES/WK
     Route: 058
     Dates: start: 20120611
  7. ENBREL [Suspect]
     Dosage: 25 MG, 2 TIMES/WK
     Dates: start: 20120116

REACTIONS (3)
  - STAPHYLOCOCCAL INFECTION [None]
  - RHEUMATOID ARTHRITIS [None]
  - INFECTED FISTULA [None]
